FAERS Safety Report 8152624-6 (Version None)
Quarter: 2012Q1

REPORT INFORMATION
  Report Type: 
  Country: None (occurrence: None)
  Receive Date: 20120221
  Receipt Date: 20120210
  Transmission Date: 20120608
  Serious: Yes (Other)
  Sender: FDA-Public Use
  Company Number: US-JNJFOC-20120205995

PATIENT
  Sex: Female
  Weight: 124.74 kg

DRUGS (12)
  1. CARAFATE [Concomitant]
     Indication: ULCER
     Route: 048
     Dates: start: 20020101
  2. PEPCID [Concomitant]
     Indication: GASTRITIS
     Route: 048
     Dates: start: 20000101
  3. TOPAMAX [Suspect]
     Indication: MIGRAINE PROPHYLAXIS
     Route: 048
     Dates: start: 19980101, end: 20100101
  4. NEXIUM [Suspect]
     Indication: ULCER
     Route: 048
     Dates: start: 19990101, end: 20100101
  5. REGLAN [Concomitant]
     Indication: ULCER
     Route: 048
     Dates: start: 20000101
  6. NEXIUM [Suspect]
     Indication: GASTRITIS
     Route: 048
     Dates: start: 19990101, end: 20100101
  7. ELAVIL [Concomitant]
     Indication: MIGRAINE
     Route: 048
     Dates: start: 20100101
  8. DURAGESIC-100 [Concomitant]
     Indication: PAIN
     Route: 062
  9. DURAGESIC-100 [Concomitant]
     Route: 062
     Dates: start: 20030101
  10. PEPCID [Concomitant]
     Indication: ULCER
     Route: 048
     Dates: start: 20000101
  11. CARAFATE [Concomitant]
     Indication: GASTRITIS
     Route: 048
     Dates: start: 20020101
  12. REGLAN [Concomitant]
     Indication: GASTRITIS
     Route: 048
     Dates: start: 20000101

REACTIONS (2)
  - COMPLEX REGIONAL PAIN SYNDROME [None]
  - DRUG INEFFECTIVE [None]
